FAERS Safety Report 21640079 (Version 1)
Quarter: 2022Q4

REPORT INFORMATION
  Report Type: Spontaneous
  Country: DK (occurrence: DK)
  Receive Date: 20221124
  Receipt Date: 20221124
  Transmission Date: 20230113
  Serious: Yes (Hospitalization, Other)
  Sender: FDA-Public Use
  Company Number: None

PATIENT
  Sex: Male

DRUGS (2)
  1. CITALOPRAM HYDROBROMIDE [Suspect]
     Active Substance: CITALOPRAM HYDROBROMIDE
     Indication: Depressive symptom
     Dosage: INCREASED FROM 20 MG DAILY TO AN UNKNOWN DOSE ON 30OCT2019
     Dates: end: 202008
  2. CITALOPRAM HYDROBROMIDE [Suspect]
     Active Substance: CITALOPRAM HYDROBROMIDE
     Dosage: VARYING DOSAGE BETWEEN 20-40 MG DAILY
     Dates: start: 1993, end: 2015

REACTIONS (6)
  - Anger [Unknown]
  - Bipolar disorder [Unknown]
  - Libido increased [Unknown]
  - Depressive symptom [Unknown]
  - Suicidal ideation [Unknown]
  - Insomnia [Unknown]

NARRATIVE: CASE EVENT DATE: 20150401
